FAERS Safety Report 6803790 (Version 2)
Quarter: 2014Q1

REPORT INFORMATION
  Report Type: Spontaneous
  Country: US (occurrence: None)
  Receive Date: 20081023
  Receipt Date: 20140224
  Transmission Date: 20141002
  Serious: Yes (Hospitalization)
  Sender: FDA-Public Use
  Company Number: 2008S1010020

PATIENT
  Age: 54 Year
  Sex: Female

DRUGS (9)
  1. FLEET PHOSPHO-SODA [Suspect]
     Indication: CONSTIPATION
     Dosage: 30 ML, 2 IN 24 HOURS, ORAL
     Route: 048
     Dates: start: 20061113, end: 20061113
  2. LISINOPRIL [Concomitant]
  3. TYLENOL PM [Concomitant]
  4. SENOKOT S [Concomitant]
  5. PERCOCET [Concomitant]
  6. MORPHINE [Concomitant]
  7. ZANTAC (RANITIDINE HYDROCHLORIDE) [Concomitant]
  8. PROZAC (FLUOXETINE HYDROCHLORIDE) [Concomitant]
  9. MS CONTIN [Concomitant]

REACTIONS (5)
  - Hyperkalaemia [None]
  - Hypovolaemia [None]
  - Dehydration [None]
  - Renal failure acute [None]
  - Back pain [None]
